FAERS Safety Report 6731791-2 (Version None)
Quarter: 2010Q2

REPORT INFORMATION
  Report Type: 
  Country: None (occurrence: None)
  Receive Date: 20100519
  Receipt Date: 20100514
  Transmission Date: 20101027
  Serious: Yes (Death)
  Sender: FDA-Public Use
  Company Number: NO-PFIZER INC-2010060765

PATIENT
  Age: 44 Year
  Sex: Female

DRUGS (4)
  1. CHAMPIX [Suspect]
     Indication: SMOKING CESSATION THERAPY
     Dosage: 0,5-1 MG/DAILY
     Route: 048
  2. LIPITOR [Concomitant]
  3. ZANTAC [Concomitant]
  4. METOPROLOL [Concomitant]

REACTIONS (1)
  - SUDDEN DEATH [None]
